FAERS Safety Report 20322814 (Version 1)
Quarter: 2022Q1

REPORT INFORMATION
  Report Type: Report from Study
  Country: US (occurrence: US)
  Receive Date: 20220111
  Receipt Date: 20220111
  Transmission Date: 20220423
  Serious: No
  Sender: FDA-Public Use
  Company Number: US-NOVARTISTESTPH-NVSC2022US005049

PATIENT
  Age: 36 Year

DRUGS (1)
  1. ENTRESTO [Suspect]
     Active Substance: SACUBITRIL\VALSARTAN
     Indication: Product used for unknown indication
     Dosage: UNK (TWICE A DAY)
     Route: 048
     Dates: start: 202111

REACTIONS (2)
  - Road traffic accident [Unknown]
  - Joint injury [Unknown]

NARRATIVE: CASE EVENT DATE: 20220107
